FAERS Safety Report 11829110 (Version 1)
Quarter: 2015Q4

REPORT INFORMATION
  Report Type: Spontaneous
  Country: US (occurrence: US)
  Receive Date: 20151211
  Receipt Date: 20151211
  Transmission Date: 20160305
  Serious: No
  Sender: FDA-Public Use
  Company Number: US-KYTHERA BIOPHARMACEUTICALS-KYT-2015-000004

PATIENT

DRUGS (2)
  1. LIDOCAINE W/EPINEPHRINE [Concomitant]
     Active Substance: EPINEPHRINE\LIDOCAINE
     Indication: ANAESTHESIA
     Dosage: 1/100,000 X 4CC; UNK
     Dates: start: 20150618, end: 20150618
  2. KYBELLA [Suspect]
     Active Substance: DEOXYCHOLIC ACID
     Indication: FAT TISSUE INCREASED
     Dosage: 5 ML, UNK
     Dates: start: 20150618

REACTIONS (1)
  - Nipple exudate bloody [Recovered/Resolved]

NARRATIVE: CASE EVENT DATE: 20150621
